FAERS Safety Report 5190258-6 (Version None)
Quarter: 2006Q4

REPORT INFORMATION
  Report Type: 
  Country: None (occurrence: None)
  Receive Date: 20061222
  Receipt Date: 20061213
  Transmission Date: 20070319
  Serious: Yes (Hospitalization)
  Sender: FDA-Public Use
  Company Number: PHBS2006JP19414

PATIENT
  Age: 48 Year
  Sex: Female

DRUGS (3)
  1. DICLOFENAC SODIUM [Suspect]
     Indication: DYSMENORRHOEA
     Dates: start: 20051201
  2. ACEMETACIN [Suspect]
     Indication: DYSMENORRHOEA
     Route: 048
     Dates: start: 20051201
  3. LOXOPROFEN [Suspect]
     Indication: DYSMENORRHOEA
     Route: 048
     Dates: start: 20051201

REACTIONS (5)
  - DISSEMINATED INTRAVASCULAR COAGULATION [None]
  - GALLBLADDER DISORDER [None]
  - LARGE INTESTINAL ULCER [None]
  - LIVER DISORDER [None]
  - PERITONITIS [None]
